FAERS Safety Report 7296121-9 (Version None)
Quarter: 2011Q1

REPORT INFORMATION
  Report Type: 
  Country: None (occurrence: None)
  Receive Date: 20110216
  Receipt Date: 20110204
  Transmission Date: 20110831
  Serious: Yes (Other)
  Sender: FDA-Public Use
  Company Number: US-ROCHE-752310

PATIENT
  Sex: Female
  Weight: 67.6 kg

DRUGS (3)
  1. AVASTIN [Suspect]
     Dosage: FREQUENCY: EVERY 3-4 WEEKS
     Route: 042
     Dates: start: 20061116, end: 20101230
  2. ALIMTA [Concomitant]
  3. AVASTIN [Suspect]
     Dosage: FREQUENCY: EVERY 3-4 WEEKS
     Route: 042
     Dates: start: 20110127

REACTIONS (8)
  - OEDEMA PERIPHERAL [None]
  - PALPITATIONS [None]
  - CHEST PAIN [None]
  - TREMOR [None]
  - HYPERTENSION [None]
  - HEADACHE [None]
  - INFUSION RELATED REACTION [None]
  - HYPERHIDROSIS [None]
